FAERS Safety Report 9759758 (Version 2)
Quarter: 2013Q4

REPORT INFORMATION
  Report Type: Spontaneous
  Country: US (occurrence: US)
  Receive Date: 20131216
  Receipt Date: 20131216
  Transmission Date: 20140711
  Serious: No
  Sender: FDA-Public Use
  Company Number: US-GILEAD-2010-0028580

PATIENT
  Sex: Male
  Weight: 147.42 kg

DRUGS (13)
  1. LETAIRIS [Suspect]
     Indication: PULMONARY ARTERIAL HYPERTENSION
     Route: 048
     Dates: start: 20100331
  2. COREG [Concomitant]
  3. ASPIRIN [Concomitant]
  4. ZOCOR [Concomitant]
  5. BUMEX [Concomitant]
  6. SPIRONOLACTONE [Concomitant]
  7. FLOMAX [Concomitant]
  8. HUMALOG [Concomitant]
  9. LANTUS [Concomitant]
  10. BENAZEPRIL HCL [Concomitant]
  11. PAXIL [Concomitant]
  12. OXYCONTIN [Concomitant]
  13. MULTIVITAMIN [Concomitant]

REACTIONS (3)
  - Anxiety [Unknown]
  - Nasal congestion [Unknown]
  - Sinus disorder [Unknown]
